FAERS Safety Report 7644234-1 (Version None)
Quarter: 2011Q3

REPORT INFORMATION
  Report Type: 
  Country: None (occurrence: None)
  Receive Date: 20110729
  Receipt Date: 20110718
  Transmission Date: 20111222
  Serious: Yes (Hospitalization)
  Sender: FDA-Public Use
  Company Number: PHHY2011IT64482

PATIENT
  Sex: Female

DRUGS (3)
  1. NEBIVOLOL HCL [Concomitant]
     Dosage: 5 MG, DAILY
     Route: 048
  2. TASIGNA [Suspect]
     Indication: CHRONIC MYELOID LEUKAEMIA
     Dosage: 800 MG, DAILY
     Route: 048
     Dates: start: 20100922
  3. OLMESARTAN MEDOXOMIL [Concomitant]
     Dosage: 40 MG, DAILY
     Route: 048

REACTIONS (1)
  - ISCHAEMIC STROKE [None]
